FAERS Safety Report 5147205-2 (Version None)
Quarter: 2006Q4

REPORT INFORMATION
  Report Type: 
  Country: None (occurrence: None)
  Receive Date: 20061103
  Receipt Date: 20061019
  Transmission Date: 20070319
  Serious: Yes (Death, Hospitalization)
  Sender: FDA-Public Use
  Company Number: 2005EU002296

PATIENT
  Age: 59 Year
  Sex: Female

DRUGS (13)
  1. FK506 (TACROLIMUS) CAPSULE [Suspect]
     Indication: LIVER TRANSPLANT
     Dosage: 0.5 MG, UID/QD, ORAL
     Route: 048
     Dates: start: 20050813, end: 20050910
  2. MYCOPHENOLATE MOFETIL [Suspect]
     Indication: LIVER TRANSPLANT
     Dosage: 1000 MG, BID, IV NOS
     Route: 042
     Dates: start: 20050808, end: 20050910
  3. ZENAPAX [Suspect]
     Indication: LIVER TRANSPLANT
     Dosage: 200.00 MG, UID/QD, IV NOS
     Route: 042
     Dates: start: 20050809, end: 20050815
  4. METHYLPREDNISOLONE [Suspect]
     Indication: LIVER TRANSPLANT
     Dosage: UID/QD
     Dates: start: 20050808, end: 20050808
  5. PREDNISONE TAB [Suspect]
     Indication: LIVER TRANSPLANT
     Dosage: 20 MG, UID/QD
     Dates: start: 20050809, end: 20050920
  6. HYDROCORTISONE [Suspect]
     Indication: LIVER TRANSPLANT
     Dosage: 300 MGD, IV NOS
     Route: 042
     Dates: start: 20050920, end: 20050920
  7. NOREPINEPHRINE HYDROCHLORIDE (NOREPINEPHRINE HYDROCHLORIDE) [Concomitant]
  8. ANTITHROMBIN III (ANTITHROMBIN III) [Concomitant]
  9. SULFAMETHOXAZOLE + TRIMETHOPRIM [Concomitant]
  10. METOPROLOL TARTRATE [Concomitant]
  11. CALCIUM (CALCIUM) [Concomitant]
  12. CASPOFUNGIN (CASPOFUNGIN) [Concomitant]
  13. GANCICLOVIR [Concomitant]

REACTIONS (16)
  - ABDOMINAL INFECTION [None]
  - ASPERGILLOSIS [None]
  - BONE MARROW FAILURE [None]
  - CANDIDIASIS [None]
  - ENTEROCOCCAL INFECTION [None]
  - HAEMATOMA INFECTION [None]
  - HEPATIC FAILURE [None]
  - LIVER TRANSPLANT [None]
  - MULTI-ORGAN FAILURE [None]
  - RENAL FAILURE [None]
  - SCAR [None]
  - SEPSIS [None]
  - SEPTIC SHOCK [None]
  - SURGICAL PROCEDURE REPEATED [None]
  - WOUND DEHISCENCE [None]
  - WOUND SECRETION [None]
